FAERS Safety Report 10154500 (Version 1)
Quarter: 2014Q2

REPORT INFORMATION
  Report Type: Spontaneous
  Country: US (occurrence: None)
  Receive Date: 20140505
  Receipt Date: 20140505
  Transmission Date: 20141212
  Serious: Yes (Other)
  Sender: FDA-Public Use
  Company Number: None

PATIENT
  Age: 63 Year
  Sex: Female
  Weight: 64.41 kg

DRUGS (3)
  1. NITROFURANTOIN [Suspect]
     Indication: URINARY TRACT INFECTION
     Route: 048
     Dates: start: 20140501, end: 20140502
  2. MSM [Concomitant]
  3. IODINE SUPPLEMENT [Concomitant]

REACTIONS (3)
  - Headache [None]
  - Nausea [None]
  - Vomiting [None]
